FAERS Safety Report 22371528 (Version 1)
Quarter: 2023Q2

REPORT INFORMATION
  Report Type: Report from Study
  Country: FR (occurrence: FR)
  Receive Date: 20230526
  Receipt Date: 20230526
  Transmission Date: 20230722
  Serious: Yes (Other)
  Sender: FDA-Public Use
  Company Number: FR-Accord-359548

PATIENT
  Age: 7 Year
  Sex: Female

DRUGS (1)
  1. HYDROXYCHLOROQUINE [Suspect]
     Active Substance: HYDROXYCHLOROQUINE
     Indication: Gene mutation
     Route: 048

REACTIONS (2)
  - Abdominal pain [Unknown]
  - Rhabdomyolysis [Unknown]
